FAERS Safety Report 4580080-3 (Version None)
Quarter: 2005Q1

REPORT INFORMATION
  Report Type: 
  Country: None (occurrence: None)
  Receive Date: 20050210
  Receipt Date: 20050121
  Transmission Date: 20050727
  Serious: Yes (Other)
  Sender: FDA-Public Use
  Company Number: 050005

PATIENT
  Age: 17 Year
  Sex: Male
  Weight: 72.5755 kg

DRUGS (2)
  1. POLYETHYLENE GLYCOL 3350, NF POWDER FOR SOLUTION [Suspect]
     Indication: CONSTIPATION
     Dosage: 17G/BID (AM + PM) /PO
     Route: 048
     Dates: start: 20041219, end: 20050101
  2. BIPOLAR MEDICATION (BELIEVED TO BE A COMBINATION THERAPY OF TRYPTANOL [Concomitant]

REACTIONS (1)
  - SUICIDE ATTEMPT [None]
